FAERS Safety Report 7530446-4 (Version None)
Quarter: 2011Q2

REPORT INFORMATION
  Report Type: 
  Country: None (occurrence: None)
  Receive Date: 20110607
  Receipt Date: 20110602
  Transmission Date: 20111010
  Serious: Yes (Other)
  Sender: FDA-Public Use
  Company Number: CHPA2011US07507

PATIENT
  Sex: Female
  Weight: 70.295 kg

DRUGS (1)
  1. MAALOX UNKNOWN [Suspect]
     Dosage: 12 TSP, QD
     Route: 048
     Dates: start: 19670101

REACTIONS (3)
  - INCORRECT DRUG ADMINISTRATION DURATION [None]
  - HIP SURGERY [None]
  - OFF LABEL USE [None]
